FAERS Safety Report 6750010-4 (Version None)
Quarter: 2010Q2

REPORT INFORMATION
  Report Type: 
  Country: None (occurrence: None)
  Receive Date: 20100601
  Receipt Date: 20100527
  Transmission Date: 20101027
  Serious: Yes (Hospitalization)
  Sender: FDA-Public Use
  Company Number: GXKR2010ES05517

PATIENT
  Age: 78 Year
  Sex: Female

DRUGS (3)
  1. DOXORUBICIN (NGX) [Suspect]
     Indication: NEOPLASM MALIGNANT
     Dosage: UNK
     Route: 042
     Dates: start: 20091001, end: 20091112
  2. FLUOROURACIL [Suspect]
     Indication: NEOPLASM MALIGNANT
     Dosage: UNK
     Route: 042
     Dates: start: 20091001, end: 20091112
  3. GENOXAL [Suspect]
     Indication: NEOPLASM MALIGNANT
     Dosage: 1 DF, UNK
     Route: 042
     Dates: start: 20091001, end: 20091112

REACTIONS (2)
  - FEBRILE NEUTROPENIA [None]
  - PANCYTOPENIA [None]
